FAERS Safety Report 8340430-9 (Version None)
Quarter: 2012Q2

REPORT INFORMATION
  Report Type: 
  Country: None (occurrence: None)
  Receive Date: 20120507
  Receipt Date: 20120507
  Transmission Date: 20120825
  Serious: Yes (Other)
  Sender: FDA-Public Use
  Company Number: None

PATIENT
  Age: 40 Year
  Sex: Male
  Weight: 88.45 kg

DRUGS (2)
  1. NEXIUM [Suspect]
     Indication: GASTROOESOPHAGEAL REFLUX DISEASE
     Dosage: |DOSAGETEXT: 40 MG||STRENGTH: 40 MG||FREQ: DAILY||ROUTE: ORAL|
     Route: 048
     Dates: start: 20060901, end: 20120410
  2. NEXIUM [Suspect]
     Indication: THROAT IRRITATION
     Dosage: |DOSAGETEXT: 40 MG||STRENGTH: 40 MG||FREQ: DAILY||ROUTE: ORAL|
     Route: 048
     Dates: start: 20060901, end: 20120410

REACTIONS (1)
  - RIB FRACTURE [None]
